FAERS Safety Report 18103985 (Version 1)
Quarter: 2020Q3

REPORT INFORMATION
  Report Type: Spontaneous
  Country: US (occurrence: US)
  Receive Date: 20200801
  Receipt Date: 20200801
  Transmission Date: 20201103
  Serious: No
  Sender: FDA-Public Use
  Company Number: None

PATIENT
  Sex: Male

DRUGS (1)
  1. PRO SANITIZE ADVANCED HAND SANITIZER [Suspect]
     Active Substance: ALCOHOL

REACTIONS (5)
  - Dizziness [None]
  - Product formulation issue [None]
  - Product odour abnormal [None]
  - Recalled product administered [None]
  - Nausea [None]
